FAERS Safety Report 10052188 (Version 1)
Quarter: 2014Q2

REPORT INFORMATION
  Report Type: Other
  Country: GB (occurrence: GB)
  Receive Date: 20140402
  Receipt Date: 20140402
  Transmission Date: 20141212
  Serious: Yes (Disabling, Other)
  Sender: FDA-Public Use
  Company Number: GB-LUPIN PHARMACEUTICALS INC.-E2B_00001863

PATIENT
  Age: 75 Year
  Sex: Male

DRUGS (4)
  1. SIMVASTATIN [Suspect]
     Indication: PRODUCT USED FOR UNKNOWN INDICATION
     Route: 065
  2. ATORVASTATIN [Suspect]
     Indication: PRODUCT USED FOR UNKNOWN INDICATION
     Route: 065
  3. FINASTERIDE [Concomitant]
     Indication: PRODUCT USED FOR UNKNOWN INDICATION
     Route: 065
  4. LISINOPRIL [Concomitant]
     Indication: PRODUCT USED FOR UNKNOWN INDICATION
     Route: 065

REACTIONS (6)
  - Arthralgia [Recovered/Resolved with Sequelae]
  - Myalgia [Recovered/Resolved with Sequelae]
  - Muscle atrophy [Recovered/Resolved with Sequelae]
  - Mental impairment [Recovered/Resolved with Sequelae]
  - Confusional state [Unknown]
  - Amnesia [Unknown]
